FAERS Safety Report 16212151 (Version 2)
Quarter: 2019Q2

REPORT INFORMATION
  Report Type: Spontaneous
  Country: BR (occurrence: BR)
  Receive Date: 20190418
  Receipt Date: 20190508
  Transmission Date: 20190711
  Serious: Yes (Other)
  Sender: FDA-Public Use
  Company Number: BR-TORRENT-00004921

PATIENT
  Age: 87 Year
  Sex: Female
  Weight: 60 kg

DRUGS (6)
  1. NATRILIX [Concomitant]
     Active Substance: INDAPAMIDE
     Indication: BLOOD GLUCOSE
     Dosage: 1.5 MG ONE TABLET DAILY
     Dates: start: 2004
  2. DIAMICRON [Concomitant]
     Active Substance: GLICLAZIDE
     Indication: BLOOD GLUCOSE
     Dosage: 30 MG ONE TABLET DAILY
     Dates: start: 2004
  3. BUPROPION HYDROCHLORIDE. [Concomitant]
     Active Substance: BUPROPION HYDROCHLORIDE
     Indication: FEELING OF RELAXATION
     Dosage: 150 MG ONE TABLET DAILY
     Dates: start: 2014
  4. CAPTOPRIL. [Concomitant]
     Active Substance: CAPTOPRIL
     Indication: BLOOD PRESSURE MEASUREMENT
     Dosage: 25 MG TWO TABLETS DAILY
     Dates: start: 2004
  5. EPEZ [Suspect]
     Active Substance: DONEPEZIL HYDROCHLORIDE
     Indication: DEMENTIA ALZHEIMER^S TYPE
     Dosage: 09 OR OCT-2018 ONE TABLET IN THE MORNING
     Route: 048
     Dates: start: 2018, end: 201810
  6. NISINA [Concomitant]
     Indication: BLOOD GLUCOSE
     Dosage: 2015 OR 2016

REACTIONS (5)
  - Blood glucose increased [Recovered/Resolved]
  - Diarrhoea [Recovered/Resolved]
  - Vomiting [Recovered/Resolved]
  - Hypertension [Recovered/Resolved]
  - Dehydration [Unknown]

NARRATIVE: CASE EVENT DATE: 201810
